FAERS Safety Report 5799638-9 (Version None)
Quarter: 2008Q3

REPORT INFORMATION
  Report Type: 
  Country: None (occurrence: None)
  Receive Date: 20080702
  Receipt Date: 20080702
  Transmission Date: 20090109
  Serious: Yes (Other)
  Sender: FDA-Public Use
  Company Number: None

PATIENT
  Age: 77 Year
  Sex: Male
  Weight: 59.8748 kg

DRUGS (1)
  1. DIGITEK 0.235 BERTEK [Suspect]
     Indication: CARDIAC FAILURE
     Dosage: 1 QD 3/19/08 TO CURRENT.
     Dates: start: 20080319

REACTIONS (2)
  - DIZZINESS [None]
  - HYPOTENSION [None]
